FAERS Safety Report 5600026-6 (Version None)
Quarter: 2007Q4

REPORT INFORMATION
  Report Type: 
  Country: None (occurrence: None)
  Receive Date: 20071226
  Receipt Date: 20070409
  Transmission Date: 20080405
  Serious: Yes (Life-Threatening, Hospitalization, Other)
  Sender: FDA-Public Use
  Company Number: 2006-0009779

PATIENT
  Age: 40 Year
  Sex: Male
  Weight: 76.2043 kg

DRUGS (9)
  1. VIREAD [Suspect]
     Indication: HIV INFECTION
     Dosage: 300 MG, 1 IN 1 D, ORAL
     Route: 048
     Dates: start: 20060415, end: 20060515
  2. COMBIVIR [Concomitant]
  3. KALETRA [Concomitant]
  4. BACTRIM [Concomitant]
  5. WELLBUTRIN [Concomitant]
  6. DETROL [Concomitant]
  7. LEVAQUIN [Concomitant]
  8. SEROQUEL [Concomitant]
  9. PRAVACHOL [Concomitant]

REACTIONS (2)
  - NEPHRITIS INTERSTITIAL [None]
  - RENAL FAILURE ACUTE [None]
